FAERS Safety Report 4293785-9 (Version None)
Quarter: 2004Q1

REPORT INFORMATION
  Report Type: 
  Country: None (occurrence: None)
  Receive Date: 20040210
  Receipt Date: 20040128
  Transmission Date: 20041129
  Serious: Yes (Other)
  Sender: FDA-Public Use
  Company Number: 2004006031

PATIENT
  Age: 39 Year
  Sex: Female
  Weight: 90 kg

DRUGS (1)
  1. SERTRALINE HCL [Suspect]
     Indication: DEPRESSION
     Dosage: 150 MG (DAILY), ORAL
     Route: 048
     Dates: start: 20030901, end: 20031201

REACTIONS (2)
  - CONTUSION [None]
  - EPISTAXIS [None]
